FAERS Safety Report 6724773-8 (Version None)
Quarter: 2010Q2

REPORT INFORMATION
  Report Type: 
  Country: None (occurrence: None)
  Receive Date: 20100513
  Receipt Date: 20100507
  Transmission Date: 20101027
  Serious: Yes (Hospitalization)
  Sender: FDA-Public Use
  Company Number: JP-BAYER-200915259BYL

PATIENT
  Age: 55 Year
  Sex: Male
  Weight: 60 kg

DRUGS (5)
  1. NEXAVAR [Suspect]
     Indication: HEPATIC NEOPLASM MALIGNANT
     Dosage: TOTAL DAILY DOSE: 800 MG  UNIT DOSE: 200 MG
     Route: 048
     Dates: start: 20091215, end: 20100105
  2. NEXAVAR [Suspect]
     Dosage: UNIT DOSE: 200 MG
     Route: 048
     Dates: start: 20100113
  3. BARACLUDE [Concomitant]
     Indication: HEPATITIS B
     Dosage: UNIT DOSE: 0.5 MG
     Route: 048
     Dates: start: 20090917
  4. SELBEX [Concomitant]
     Indication: GASTRITIS
     Dosage: UNIT DOSE: 50 MG
     Route: 048
     Dates: start: 20091027
  5. PASTARON [Concomitant]
     Indication: PROPHYLAXIS
     Dosage: TWO OR THREE TIMES/DAY
     Route: 061
     Dates: start: 20091215

REACTIONS (4)
  - C-REACTIVE PROTEIN INCREASED [None]
  - DIARRHOEA [None]
  - ENTEROCOLITIS [None]
  - LIPASE INCREASED [None]
